FAERS Safety Report 9379784 (Version 1)
Quarter: 2013Q3

REPORT INFORMATION
  Report Type: Spontaneous
  Country: US (occurrence: US)
  Receive Date: 20130702
  Receipt Date: 20130702
  Transmission Date: 20140515
  Serious: No
  Sender: FDA-Public Use
  Company Number: US-TEVA-414092USA

PATIENT
  Age: 37 Year
  Sex: Female

DRUGS (2)
  1. NUVIGIL [Suspect]
  2. PROVIGIL [Suspect]

REACTIONS (2)
  - Drug ineffective [Unknown]
  - Off label use [Unknown]
